FAERS Safety Report 8425841-5 (Version None)
Quarter: 2012Q2

REPORT INFORMATION
  Report Type: 
  Country: None (occurrence: None)
  Receive Date: 20120611
  Receipt Date: 20120607
  Transmission Date: 20120825
  Serious: Yes (Other)
  Sender: FDA-Public Use
  Company Number: PHHY2011AU116435

PATIENT
  Sex: Female
  Weight: 54.5 kg

DRUGS (12)
  1. ASTRIX 100 [Concomitant]
  2. CALTRATE + VITAMIN D 600MG [Concomitant]
     Dosage: 200 IU, ONE DAILY
  3. SYSTANE (PROPYLENE GLYCOL/MACROGOL) [Concomitant]
     Dosage: 0.3 %, 1 DROP PRN
  4. PANADOL OSTEO [Concomitant]
  5. MICARDIS [Concomitant]
     Dosage: 40 MG
  6. NORMACOL WITH GRANULES [Concomitant]
  7. ZOLEDRONOC ACID [Suspect]
     Dosage: 5 MG
     Route: 042
     Dates: start: 20100325
  8. ANTROQUORIL 0.02% CREAM [Concomitant]
     Dosage: 0.02 %, UNK
  9. NITROLINGUAL PUMPSPRAY [Concomitant]
  10. TEMAZEPAM [Concomitant]
  11. SYSTANE (PROPYLENE GLYCOL/MACROGOL) [Concomitant]
     Dosage: 0.4 %, 1 DROP PRN
  12. OSTELIN VITAMIN D [Concomitant]

REACTIONS (12)
  - POLYCHROMASIA [None]
  - MALAISE [None]
  - NORMOCHROMIC NORMOCYTIC ANAEMIA [None]
  - PHARYNGEAL POUCH [None]
  - ROULEAUX FORMATION [None]
  - INFECTION [None]
  - BLOOD SODIUM DECREASED [None]
  - HAEMORRHAGE [None]
  - FRACTURE [None]
  - INFLAMMATION [None]
  - GLOMERULAR FILTRATION RATE DECREASED [None]
  - THROMBOCYTOSIS [None]
